FAERS Safety Report 6208618-0 (Version None)
Quarter: 2009Q2

REPORT INFORMATION
  Report Type: 
  Country: None (occurrence: None)
  Receive Date: 20090529
  Receipt Date: 20090525
  Transmission Date: 20091009
  Serious: Yes (Other)
  Sender: FDA-Public Use
  Company Number: FR-JNJFOC-20090500496

PATIENT
  Sex: Male

DRUGS (4)
  1. RISPERDAL CONSTA [Suspect]
     Indication: SCHIZOPHRENIA
     Route: 030
  2. VALIUM [Concomitant]
     Route: 065
  3. LEPTICUR [Concomitant]
     Route: 048
  4. LOXAPAC [Concomitant]
     Route: 065

REACTIONS (1)
  - ORAL FUNGAL INFECTION [None]
